FAERS Safety Report 23107333 (Version 1)
Quarter: 2023Q4

REPORT INFORMATION
  Report Type: Report from Study
  Country: US (occurrence: US)
  Receive Date: 20231026
  Receipt Date: 20231026
  Transmission Date: 20240110
  Serious: Yes (Other)
  Sender: FDA-Public Use
  Company Number: US-ABBVIE-5381801

PATIENT
  Sex: Female

DRUGS (1)
  1. HUMIRA [Suspect]
     Active Substance: ADALIMUMAB
     Indication: Crohn^s disease
     Dosage: CF, FORM STRENGTH: 40 MG
     Route: 058
     Dates: start: 20220525

REACTIONS (5)
  - Rotator cuff syndrome [Recovering/Resolving]
  - Intervertebral disc displacement [Recovering/Resolving]
  - Intervertebral disc compression [Unknown]
  - Nerve compression [Recovering/Resolving]
  - Spondylitis [Recovering/Resolving]
